FAERS Safety Report 16317556 (Version 1)
Quarter: 2019Q2

REPORT INFORMATION
  Report Type: Spontaneous
  Country: US (occurrence: US)
  Receive Date: 20190516
  Receipt Date: 20190516
  Transmission Date: 20190711
  Serious: Yes (Other)
  Sender: FDA-Public Use
  Company Number: US-CELLTRION INC.-2019US019995

PATIENT

DRUGS (2)
  1. INFLECTRA [Suspect]
     Active Substance: INFLIXIMAB-DYYB
     Indication: PSORIATIC ARTHROPATHY
     Dosage: 500MG/250ML ADMINISTERED AT RATE OF 160ML/HR
     Route: 042
     Dates: start: 20190308
  2. INFLECTRA [Suspect]
     Active Substance: INFLIXIMAB-DYYB
     Indication: PSORIASIS
     Dosage: 500MG/250ML ADMINISTERED AT RATE OF 160ML/HR
     Route: 042
     Dates: start: 20190322, end: 20190322

REACTIONS (6)
  - Dizziness [Recovered/Resolved]
  - Flushing [Recovered/Resolved]
  - Erythema [Recovering/Resolving]
  - Hypersensitivity [Recovered/Resolved]
  - Wheezing [Recovered/Resolved]
  - Dyspnoea [Recovered/Resolved]

NARRATIVE: CASE EVENT DATE: 20190322
